FAERS Safety Report 8720157 (Version 5)
Quarter: 2013Q2

REPORT INFORMATION
  Report Type: Report from Study
  Country: US (occurrence: US)
  Receive Date: 20120813
  Receipt Date: 20130615
  Transmission Date: 20140414
  Serious: Yes (Death, Life-Threatening, Disabling, Other)
  Sender: FDA-Public Use
  Company Number: US-GENZYME-MOZO-1000728

PATIENT
  Age: 6 Year
  Sex: Female
  Weight: 25 kg

DRUGS (12)
  1. MOZOBIL [Suspect]
     Indication: HAEMATOPOIETIC STEM CELL MOBILISATION
     Dosage: 6 MG, QD
     Route: 042
     Dates: start: 20120616, end: 20120618
  2. CLOLAR [Suspect]
     Indication: ACUTE LYMPHOCYTIC LEUKAEMIA
     Dosage: 70 MG, QD
     Route: 042
     Dates: start: 20120110, end: 20120111
  3. THYMOGLOBULIN [Suspect]
     Indication: ACUTE LYMPHOCYTIC LEUKAEMIA
     Dosage: 229.9 MG, QD
     Route: 042
     Dates: start: 20120115, end: 20120118
  4. THYMOGLOBULIN [Suspect]
     Dosage: 254 MG, QD
     Route: 042
     Dates: start: 20120616, end: 20120619
  5. FLUDARA [Suspect]
     Indication: ACUTE LYMPHOCYTIC LEUKAEMIA
     Dosage: 140 MG, QD
     Route: 042
     Dates: start: 20120611, end: 20120615
  6. FENTANYL [Concomitant]
     Indication: ANALGESIC THERAPY
     Dosage: 50 MCG, UNK
     Route: 042
     Dates: start: 20120627, end: 20120704
  7. DILAUDID [Concomitant]
     Indication: ANALGESIC THERAPY
     Dosage: 1 MG, UNK
     Route: 042
     Dates: start: 20120627, end: 20120704
  8. MEROPENEM [Concomitant]
     Indication: ANTI-INFECTIVE THERAPY
     Dosage: 500 MG, UNK
     Route: 042
     Dates: start: 20120627, end: 20120704
  9. THIOTEPA [Concomitant]
     Indication: ACUTE LYMPHOCYTIC LEUKAEMIA
     Dosage: 256 MG, Q12HR
     Route: 065
     Dates: start: 20120616, end: 20120617
  10. BUSULFAN [Concomitant]
     Indication: ACUTE LYMPHOCYTIC LEUKAEMIA
     Dosage: UNK
     Route: 065
     Dates: start: 20120112, end: 20120114
  11. MELPHALAN [Concomitant]
     Indication: ACUTE LYMPHOCYTIC LEUKAEMIA
     Dosage: 130 MG, QD
     Route: 042
     Dates: start: 20120617, end: 20120618
  12. CYTARABINE [Concomitant]
     Indication: ACUTE LYMPHOCYTIC LEUKAEMIA
     Dosage: UNK
     Route: 065
     Dates: start: 20120111, end: 20120111

REACTIONS (11)
  - Cardiac failure [Fatal]
  - Pulmonary alveolar haemorrhage [Fatal]
  - Pleural effusion [Fatal]
  - Renal failure [Fatal]
  - Respiratory failure [Fatal]
  - Pericardial effusion [Recovered/Resolved]
  - Hepatic failure [Fatal]
  - Ischaemia [Fatal]
  - Fusarium infection [Fatal]
  - Sepsis [Fatal]
  - Hypertension [Fatal]
